FAERS Safety Report 23086966 (Version 1)
Quarter: 2023Q4

REPORT INFORMATION
  Report Type: Report from Study
  Country: US (occurrence: None)
  Receive Date: 20231020
  Receipt Date: 20231020
  Transmission Date: 20240110
  Serious: Yes (Hospitalization)
  Sender: FDA-Public Use
  Company Number: US-ROCHE-3436312

PATIENT
  Age: 62 Year
  Sex: Male
  Weight: 95.7 kg

DRUGS (18)
  1. MOSUNETUZUMAB [Suspect]
     Active Substance: MOSUNETUZUMAB
     Indication: Follicular lymphoma
     Dosage: 5MG 1ST DOSE THEN 45MG EVERY 21 DAYS
     Route: 058
     Dates: start: 20230714, end: 20230825
  2. POLATUZUMAB VEDOTIN [Suspect]
     Active Substance: POLATUZUMAB VEDOTIN
     Indication: Follicular lymphoma
     Dosage: 180 MG.
     Route: 042
     Dates: start: 20230714, end: 20230825
  3. ACYCLOVIR [Concomitant]
     Active Substance: ACYCLOVIR
  4. ASCORBIC ACID [Concomitant]
     Active Substance: ASCORBIC ACID
  5. ASPIRIN [Concomitant]
     Active Substance: ASPIRIN
  6. COENZYME Q10 [Concomitant]
     Active Substance: DIETARY SUPPLEMENT\UBIDECARENONE
  7. IRON [Concomitant]
     Active Substance: IRON
  8. LEVOTHYROXINE [Concomitant]
     Active Substance: LEVOTHYROXINE
  9. LORAZEPAM [Concomitant]
     Active Substance: LORAZEPAM
  10. MONTELUKAST [Concomitant]
     Active Substance: MONTELUKAST SODIUM
  11. OMEPRAZOLE [Concomitant]
     Active Substance: OMEPRAZOLE
  12. ONDANSETRON [Concomitant]
     Active Substance: ONDANSETRON
  13. PROCHLORPERAZINE [Concomitant]
     Active Substance: PROCHLORPERAZINE
  14. ROSUVASTATIN [Concomitant]
     Active Substance: ROSUVASTATIN
  15. TADALAFIL [Concomitant]
     Active Substance: TADALAFIL
  16. TRIAMCINOLONE [Concomitant]
     Active Substance: TRIAMCINOLONE
     Dosage: 0.1% PR
  17. VALSARTAN [Concomitant]
     Active Substance: VALSARTAN
  18. VITAMIN D2 [Concomitant]
     Active Substance: ERGOCALCIFEROL

REACTIONS (1)
  - Pneumonitis [Recovering/Resolving]

NARRATIVE: CASE EVENT DATE: 20230925
